FAERS Safety Report 19928985 (Version 2)
Quarter: 2021Q4

REPORT INFORMATION
  Report Type: Spontaneous
  Country: BR (occurrence: BR)
  Receive Date: 20211007
  Receipt Date: 20211012
  Transmission Date: 20220304
  Serious: Yes (Death)
  Sender: FDA-Public Use
  Company Number: BR-ROCHE-2856885

PATIENT
  Age: 67 Year
  Sex: Male
  Weight: 74.9 kg

DRUGS (1)
  1. PIRFENIDONE [Suspect]
     Active Substance: PIRFENIDONE
     Indication: Pulmonary fibrosis
     Route: 048
     Dates: start: 20210508, end: 20210510

REACTIONS (9)
  - Cardiac arrest [Fatal]
  - Pulse absent [Fatal]
  - Skin discolouration [Fatal]
  - Cardiac arrest [Fatal]
  - Hypotension [Fatal]
  - Haemodynamic instability [Fatal]
  - Neoplasm [Recovering/Resolving]
  - Rash [Recovering/Resolving]
  - Mydriasis [Unknown]

NARRATIVE: CASE EVENT DATE: 20210508
